FAERS Safety Report 23622314 (Version 2)
Quarter: 2024Q2

REPORT INFORMATION
  Report Type: Spontaneous
  Country: US (occurrence: US)
  Receive Date: 20240312
  Receipt Date: 20240404
  Transmission Date: 20240716
  Serious: No
  Sender: FDA-Public Use
  Company Number: US-PFIZER INC-202400049620

PATIENT
  Age: 57 Year
  Sex: Female
  Weight: 104.33 kg

DRUGS (2)
  1. GENOTROPIN [Suspect]
     Active Substance: SOMATROPIN
     Indication: Pituitary tumour benign
     Dosage: 1 MG, 1X/DAY
     Dates: end: 20240211
  2. GENOTROPIN [Suspect]
     Active Substance: SOMATROPIN
     Indication: Growth hormone deficiency

REACTIONS (8)
  - Wrong technique in device usage process [Unknown]
  - Poor quality device used [Unknown]
  - Product dose omission issue [Not Recovered/Not Resolved]
  - Device mechanical issue [Unknown]
  - Device leakage [Unknown]
  - Feeling abnormal [Not Recovered/Not Resolved]
  - Asthenia [Unknown]
  - Fatigue [Unknown]

NARRATIVE: CASE EVENT DATE: 20240201
